FAERS Safety Report 15355792 (Version 1)
Quarter: 2018Q3

REPORT INFORMATION
  Report Type: Spontaneous
  Country: IT (occurrence: IT)
  Receive Date: 20180906
  Receipt Date: 20180906
  Transmission Date: 20181010
  Serious: Yes (Hospitalization)
  Sender: FDA-Public Use
  Company Number: IT-TEVA-2018-IT-950439

PATIENT
  Age: 37 Year
  Sex: Male

DRUGS (2)
  1. ASPIRIN. [Concomitant]
     Active Substance: ASPIRIN
     Dosage: 100 MILLIGRAM DAILY;
     Route: 065
  2. BISOPROLOL [Suspect]
     Active Substance: BISOPROLOL
     Route: 065

REACTIONS (1)
  - Drug reaction with eosinophilia and systemic symptoms [Recovering/Resolving]
